FAERS Safety Report 4496838-5 (Version None)
Quarter: 2004Q4

REPORT INFORMATION
  Report Type: 
  Country: None (occurrence: None)
  Receive Date: 20041109
  Receipt Date: 20041108
  Transmission Date: 20050328
  Serious: Yes (Other)
  Sender: FDA-Public Use
  Company Number: US-GLAXOSMITHKLINE-A0533063A

PATIENT
  Age: 54 Year
  Sex: Female

DRUGS (11)
  1. PARNATE [Suspect]
     Dosage: 90MG PER DAY
     Route: 048
     Dates: start: 19990101
  2. ZAROXOLYN [Concomitant]
     Indication: DRUG USE FOR UNKNOWN INDICATION
  3. SPIRONOLACTONE [Concomitant]
     Indication: DRUG USE FOR UNKNOWN INDICATION
  4. KLONOPIN [Concomitant]
     Indication: DRUG USE FOR UNKNOWN INDICATION
  5. SEROQUEL [Concomitant]
     Indication: DRUG USE FOR UNKNOWN INDICATION
  6. TOPAMAX [Concomitant]
     Indication: DRUG USE FOR UNKNOWN INDICATION
  7. FOSAMAX [Concomitant]
     Indication: DRUG USE FOR UNKNOWN INDICATION
  8. LEVOTHROID [Concomitant]
     Indication: DRUG USE FOR UNKNOWN INDICATION
  9. PREMARIN [Concomitant]
     Indication: DRUG USE FOR UNKNOWN INDICATION
  10. CYTOMEL [Concomitant]
     Indication: DRUG USE FOR UNKNOWN INDICATION
  11. PROCARDIA [Concomitant]
     Indication: DRUG USE FOR UNKNOWN INDICATION

REACTIONS (6)
  - FLUID RETENTION [None]
  - HEADACHE [None]
  - LOSS OF CONSCIOUSNESS [None]
  - MICTURITION DISORDER [None]
  - PALPITATIONS [None]
  - SUICIDAL IDEATION [None]
